FAERS Safety Report 4576368-2 (Version None)
Quarter: 2005Q1

REPORT INFORMATION
  Report Type: 
  Country: None (occurrence: None)
  Receive Date: 20050207
  Receipt Date: 20050120
  Transmission Date: 20050727
  Serious: Yes (Hospitalization)
  Sender: FDA-Public Use
  Company Number: ATO-05-0015

PATIENT
  Age: 67 Year
  Sex: Male

DRUGS (1)
  1. TRISENOS (ARSNIC TRIOXIDE) [Suspect]
     Dates: end: 20050106

REACTIONS (5)
  - ACUTE RESPIRATORY DISTRESS SYNDROME [None]
  - DYSPNOEA [None]
  - ELECTROCARDIOGRAM QT CORRECTED INTERVAL PROLONGED [None]
  - LUNG INJURY [None]
  - VENTRICULAR EXTRASYSTOLES [None]
